FAERS Safety Report 8058774-7 (Version None)
Quarter: 2012Q1

REPORT INFORMATION
  Report Type: 
  Country: None (occurrence: None)
  Receive Date: 20120120
  Receipt Date: 20120110
  Transmission Date: 20120608
  Serious: Yes (Hospitalization, Other)
  Sender: FDA-Public Use
  Company Number: US-BAYER-2011-038312

PATIENT
  Age: 20 Year
  Sex: Female
  Weight: 51 kg

DRUGS (5)
  1. DROSPIRENONE AND ETHINYL ESTRADIOL [Suspect]
     Indication: CONTRACEPTION
     Dosage: UNK
     Dates: start: 20090501, end: 20091001
  2. TRI-SPRINTEC [Concomitant]
  3. DROSPIRENONE AND ETHINYL ESTRADIOL [Suspect]
     Indication: PREMENSTRUAL SYNDROME
  4. PEPCID [Concomitant]
     Indication: GASTROOESOPHAGEAL REFLUX DISEASE
  5. ORTHO TRI-CYCLEN [Concomitant]
     Dosage: UNK
     Dates: start: 20090401, end: 20090501

REACTIONS (9)
  - QUALITY OF LIFE DECREASED [None]
  - CHOLECYSTITIS ACUTE [None]
  - ANHEDONIA [None]
  - PAIN [None]
  - INJURY [None]
  - FEAR [None]
  - ANXIETY [None]
  - CHOLELITHIASIS [None]
  - BILE DUCT STONE [None]
